FAERS Safety Report 5583838-7 (Version None)
Quarter: 2008Q1

REPORT INFORMATION
  Report Type: 
  Country: None (occurrence: None)
  Receive Date: 20080108
  Receipt Date: 20080103
  Transmission Date: 20080703
  Serious: Yes (Death)
  Sender: FDA-Public Use
  Company Number: PHHO2007TW09602

PATIENT
  Age: 60 Year
  Sex: Female

DRUGS (12)
  1. AMN107 [Suspect]
     Indication: CHRONIC MYELOID LEUKAEMIA
     Dosage: 800MG DAILY
     Route: 048
     Dates: start: 20070208, end: 20070513
  2. GLIMEPIRIDE [Concomitant]
     Indication: DIABETES MELLITUS
  3. ATENOLOL [Concomitant]
     Indication: HYPERTENSION
     Dates: start: 20070213
  4. ESTAZOLAM [Concomitant]
     Indication: INSOMNIA
  5. CELECOXIB [Concomitant]
  6. ZOPICLONE [Concomitant]
  7. ACETAMINOPHEN [Concomitant]
  8. TOPAAL [Concomitant]
  9. GLYBURIDE [Concomitant]
  10. TAPAL [Concomitant]
  11. TENORMIN [Concomitant]
  12. EURODIN [Concomitant]

REACTIONS (4)
  - ANAEMIA [None]
  - CARDIAC ARREST [None]
  - ELECTROCARDIOGRAM T WAVE AMPLITUDE DECREASED [None]
  - THROMBOCYTHAEMIA [None]
